FAERS Safety Report 13727446 (Version 1)
Quarter: 2017Q3

REPORT INFORMATION
  Report Type: Report from Study
  Country: US (occurrence: US)
  Receive Date: 20170706
  Receipt Date: 20170706
  Transmission Date: 20171127
  Serious: Yes (Hospitalization)
  Sender: FDA-Public Use
  Company Number: US-IPSEN-CABO-17009332

PATIENT
  Sex: Male

DRUGS (15)
  1. CABOMETYX [Suspect]
     Active Substance: CABOZANTINIB S-MALATE
     Indication: RENAL CELL CARCINOMA
     Dosage: 60 MG, QD
     Route: 048
     Dates: start: 20170519
  2. FENOFIBRATE. [Concomitant]
     Active Substance: FENOFIBRATE
  3. LEVOTHYROXINE. [Concomitant]
     Active Substance: LEVOTHYROXINE
  4. OXYCONTIN [Concomitant]
     Active Substance: OXYCODONE HYDROCHLORIDE
  5. DEXAMETHASONE. [Concomitant]
     Active Substance: DEXAMETHASONE
  6. ASPIRIN. [Concomitant]
     Active Substance: ASPIRIN
  7. OMEPRAZOLE. [Concomitant]
     Active Substance: OMEPRAZOLE
  8. TAMSULOSIN [Concomitant]
     Active Substance: TAMSULOSIN
  9. OXYCODONE [Concomitant]
     Active Substance: OXYCODONE
  10. PREDNISONE. [Concomitant]
     Active Substance: PREDNISONE
  11. RIZATRIPTAN. [Concomitant]
     Active Substance: RIZATRIPTAN
  12. MAGNESIUM [Concomitant]
     Active Substance: MAGNESIUM
  13. LISINOPRIL. [Concomitant]
     Active Substance: LISINOPRIL
  14. BACLOFEN. [Concomitant]
     Active Substance: BACLOFEN
  15. AMOXICILLIN. [Concomitant]
     Active Substance: AMOXICILLIN

REACTIONS (3)
  - Dysphonia [Unknown]
  - Adverse drug reaction [Unknown]
  - Tremor [Unknown]
